FAERS Safety Report 21187210 (Version 4)
Quarter: 2023Q2

REPORT INFORMATION
  Report Type: Report from Study
  Country: GB (occurrence: GB)
  Receive Date: 20220808
  Receipt Date: 20230506
  Transmission Date: 20230722
  Serious: Yes (Other)
  Sender: FDA-Public Use
  Company Number: GB-NOVARTISPH-NVSC2022GB019488

PATIENT
  Age: 35 Year
  Sex: Female

DRUGS (1)
  1. ERELZI [Suspect]
     Active Substance: ETANERCEPT-SZZS
     Indication: Rheumatoid arthritis
     Dosage: 50 MG, QW (EW)
     Route: 058
     Dates: start: 20211104

REACTIONS (6)
  - Blindness [Not Recovered/Not Resolved]
  - Injection site pain [Unknown]
  - Pain in extremity [Unknown]
  - Infection [Not Recovered/Not Resolved]
  - Device delivery system issue [Unknown]
  - Product supply issue [Unknown]
